FAERS Safety Report 8798492 (Version 1)
Quarter: 2012Q4

REPORT INFORMATION
  Report Type: 
  Country: US (occurrence: None)
  Receive Date: 20120917
  Receipt Date: 20120917
  Transmission Date: 20130627
  Serious: Yes (Hospitalization)
  Sender: FDA-Public Use
  Company Number: None

PATIENT
  Sex: Male
  Weight: 93 kg

DRUGS (2)
  1. CARBOPLATIN [Suspect]
     Dates: start: 20120130
  2. PACLITAXEL (TAXOL) [Suspect]
     Dates: start: 20120130

REACTIONS (1)
  - Orthostatic hypotension [None]
